FAERS Safety Report 16352870 (Version 2)
Quarter: 2019Q2

REPORT INFORMATION
  Report Type: Spontaneous
  Country: US (occurrence: US)
  Receive Date: 20190524
  Receipt Date: 20190629
  Transmission Date: 20190711
  Serious: Yes (Other)
  Sender: FDA-Public Use
  Company Number: US-009507513-1905USA003696

PATIENT
  Age: 25 Year
  Sex: Female
  Weight: 90.25 kg

DRUGS (2)
  1. NEXPLANON [Suspect]
     Active Substance: ETONOGESTREL
     Dosage: 1 IMPLANT IN THE LEFT ARM, 3 YEARS
     Route: 059
     Dates: start: 20190228, end: 20190513
  2. NEXPLANON [Suspect]
     Active Substance: ETONOGESTREL
     Dosage: 1 DOSAGE FORM
     Route: 059
     Dates: start: 20190513

REACTIONS (6)
  - Implant site hypersensitivity [Recovered/Resolved]
  - Poor quality device used [Recovered/Resolved]
  - Implant site pain [Recovered/Resolved]
  - Device breakage [Recovered/Resolved]
  - Implant site bruising [Recovered/Resolved]
  - Device dislocation [Recovered/Resolved]

NARRATIVE: CASE EVENT DATE: 20190311
